FAERS Safety Report 24897939 (Version 3)
Quarter: 2025Q2

REPORT INFORMATION
  Report Type: Spontaneous
  Country: DE (occurrence: DE)
  Receive Date: 20250129
  Receipt Date: 20250417
  Transmission Date: 20250716
  Serious: Yes (Hospitalization, Other)
  Sender: ORGANON
  Company Number: DE-ORGANON-O2501DEU002532

PATIENT
  Age: 17 Year
  Sex: Female
  Weight: 56 kg

DRUGS (1)
  1. NUVARING [Suspect]
     Active Substance: ETHINYL ESTRADIOL\ETONOGESTREL
     Route: 067
     Dates: start: 20241207, end: 20241225

REACTIONS (10)
  - Blue toe syndrome [Recovering/Resolving]
  - Muscle spasms [Recovering/Resolving]
  - Gait inability [Recovering/Resolving]
  - Peripheral coldness [Recovering/Resolving]
  - Muscle twitching [Recovering/Resolving]
  - Weight bearing difficulty [Recovering/Resolving]
  - Hypoaesthesia [Recovering/Resolving]
  - Pain in extremity [Recovering/Resolving]
  - Tremor [Unknown]
  - Therapeutic response unexpected [Unknown]

NARRATIVE: CASE EVENT DATE: 20241201
